FAERS Safety Report 12633161 (Version 1)
Quarter: 2016Q3

REPORT INFORMATION
  Report Type: Spontaneous
  Country: US (occurrence: None)
  Receive Date: 20160808
  Receipt Date: 20160808
  Transmission Date: 20161109
  Serious: Yes (Other)
  Sender: FDA-Public Use
  Company Number: None

PATIENT
  Age: 24 Year
  Sex: Male
  Weight: 74.84 kg

DRUGS (2)
  1. KEPPRA [Suspect]
     Active Substance: LEVETIRACETAM
     Indication: BENIGN ROLANDIC EPILEPSY
     Route: 048
  2. TEGRETOL XR [Suspect]
     Active Substance: CARBAMAZEPINE

REACTIONS (8)
  - Irritability [None]
  - Anger [None]
  - Activities of daily living impaired [None]
  - Disturbance in attention [None]
  - Anxiety [None]
  - Disturbance in social behaviour [None]
  - Impaired work ability [None]
  - Therapy cessation [None]
